FAERS Safety Report 9013779 (Version 1)
Quarter: 2013Q1

REPORT INFORMATION
  Report Type: Report from Study
  Country: CA (occurrence: CA)
  Receive Date: 20130115
  Receipt Date: 20130115
  Transmission Date: 20140127
  Serious: Yes (Other)
  Sender: FDA-Public Use
  Company Number: CA-JNJFOC-20121108350

PATIENT
  Age: 42 Year
  Sex: Female
  Weight: 56.7 kg

DRUGS (4)
  1. REMICADE [Suspect]
     Indication: CROHN^S DISEASE
     Route: 042
     Dates: start: 20121115
  2. REMICADE [Suspect]
     Indication: CROHN^S DISEASE
     Dosage: 1ST TREATMENT
     Route: 042
     Dates: start: 201206
  3. METHOTREXATE [Concomitant]
     Route: 048
     Dates: start: 201106
  4. ALL OTHER THERAPEUTICS [Concomitant]
     Indication: PREMEDICATION
     Route: 065

REACTIONS (5)
  - Atrial fibrillation [Recovered/Resolved]
  - Chest discomfort [Recovered/Resolved]
  - Infusion related reaction [Recovered/Resolved]
  - Chills [Recovered/Resolved]
  - Flushing [Recovered/Resolved]
